FAERS Safety Report 10331264 (Version 1)
Quarter: 2014Q3

REPORT INFORMATION
  Report Type: Spontaneous
  Country: US (occurrence: None)
  Receive Date: 20140721
  Receipt Date: 20140721
  Transmission Date: 20150326
  Serious: Yes (Hospitalization)
  Sender: FDA-Public Use
  Company Number: None

PATIENT
  Age: 66 Year
  Sex: Female
  Weight: 59.87 kg

DRUGS (2)
  1. TAXOL [Suspect]
     Active Substance: PACLITAXEL
     Dates: end: 20111102
  2. CISPLATIN. [Suspect]
     Active Substance: CISPLATIN
     Dates: end: 20111103

REACTIONS (7)
  - Hypotension [None]
  - Blood sodium decreased [None]
  - Syncope [None]
  - Loss of consciousness [None]
  - Generalised tonic-clonic seizure [None]
  - Asthenia [None]
  - Fall [None]

NARRATIVE: CASE EVENT DATE: 20111106
